FAERS Safety Report 25895992 (Version 1)
Quarter: 2025Q4

REPORT INFORMATION
  Report Type: Spontaneous
  Country: US (occurrence: None)
  Receive Date: 20251007
  Receipt Date: 20251007
  Transmission Date: 20260118
  Serious: Yes (Life-Threatening, Hospitalization, Disabling, Other)
  Sender: FDA-CTU
  Company Number: None

PATIENT
  Age: 66 Year
  Sex: Female
  Weight: 56.25 kg

DRUGS (10)
  1. IMBRUVICA [Suspect]
     Active Substance: IBRUTINIB
     Indication: Chronic lymphocytic leukaemia
     Dosage: OTHER QUANTITY : 3 CAPSULE(S);?
     Route: 048
     Dates: start: 20230301, end: 20250201
  2. PRALUENT 75mg injection cholesterol [Concomitant]
  3. RISEDRONATE 150mg tablet once a month [Concomitant]
  4. CARVEDILOL 18.5mg 2x day [Concomitant]
  5. SPIRONOLACTONE 1/2 25mg 1x day [Concomitant]
  6. JARDIANCE 40mg 1x day [Concomitant]
  7. VEVYE cyclosporie ophthalmic solution 0.1% 2x day [Concomitant]
  8. D3 5000IU [Concomitant]
  9. 81mg aspirin [Concomitant]
  10. calcium 600mg + D3 800IU 2x day [Concomitant]

REACTIONS (4)
  - Cardiomyopathy [None]
  - Cardiac failure congestive [None]
  - Coronary artery disease [None]
  - Vitreous degeneration [None]

NARRATIVE: CASE EVENT DATE: 20250304
